FAERS Safety Report 5135657-3 (Version None)
Quarter: 2006Q4

REPORT INFORMATION
  Report Type: 
  Country: None (occurrence: None)
  Receive Date: 20061020
  Receipt Date: 20061016
  Transmission Date: 20070319
  Serious: Yes (Other)
  Sender: FDA-Public Use
  Company Number: S06-USA-03689-01

PATIENT
  Age: 77 Year
  Sex: Female

DRUGS (15)
  1. NAMENDA [Suspect]
     Indication: DEMENTIA ALZHEIMER'S TYPE
     Dosage: 5 MG QD PO
     Route: 048
     Dates: start: 20060823, end: 20060829
  2. NAMENDA [Suspect]
     Indication: DEMENTIA ALZHEIMER'S TYPE
     Dosage: 5 MG BID PO
     Route: 048
     Dates: start: 20060830, end: 20060905
  3. NAMENDA [Suspect]
     Indication: DEMENTIA ALZHEIMER'S TYPE
     Dosage: 15 MG QD PO
     Route: 048
     Dates: start: 20060906, end: 20060906
  4. NAMENDA [Suspect]
     Indication: DEMENTIA ALZHEIMER'S TYPE
     Dosage: 5 MG QD PO
     Route: 048
     Dates: start: 20060907, end: 20060909
  5. NAMENDA [Suspect]
     Indication: DEMENTIA ALZHEIMER'S TYPE
     Dosage: 5 MG BID PO
     Route: 048
     Dates: start: 20060910
  6. METFORMIN HCL [Suspect]
     Indication: DIABETES MELLITUS
     Dosage: 500 MG BID
  7. IRON [Suspect]
     Indication: IRON DEFICIENCY ANAEMIA
  8. TOPROL-XL [Concomitant]
  9. BENAZEPRIL HYDROCHLORIDE [Concomitant]
  10. ARICEPT [Concomitant]
  11. LIPITOR [Concomitant]
  12. CLOPIDOGREL [Concomitant]
  13. PEPCID AC [Concomitant]
  14. VITAMIN B-12 [Concomitant]
  15. MULTI-VITAMIN [Concomitant]

REACTIONS (15)
  - BLOOD CALCIUM INCREASED [None]
  - BLOOD PRESSURE INCREASED [None]
  - BLOOD THYROID STIMULATING HORMONE INCREASED [None]
  - DEHYDRATION [None]
  - DIABETIC NEPHROPATHY [None]
  - DIARRHOEA [None]
  - FATIGUE [None]
  - HYPOTENSION [None]
  - HYPOVOLAEMIA [None]
  - IRON DEFICIENCY ANAEMIA [None]
  - LISTLESS [None]
  - LOSS OF CONSCIOUSNESS [None]
  - SLUGGISHNESS [None]
  - SYNCOPE [None]
  - VENTRICULAR EXTRASYSTOLES [None]
